FAERS Safety Report 9167496 (Version 1)
Quarter: 2013Q1

REPORT INFORMATION
  Report Type: Spontaneous
  Country: US (occurrence: US)
  Receive Date: 20130318
  Receipt Date: 20130318
  Transmission Date: 20140127
  Serious: Yes (Hospitalization)
  Sender: FDA-Public Use
  Company Number: US-BAYER-2013-031353

PATIENT
  Age: 19 Year
  Sex: Female

DRUGS (22)
  1. YAZ [Suspect]
  2. INFLIXIMAB [Concomitant]
     Dosage: 218 MG, UNK
     Route: 042
  3. CIPROFLOXACIN [Concomitant]
     Dosage: 400 MG, UNK
     Route: 042
  4. FERROUS SULFATE [Concomitant]
     Dosage: 65 MG, UNK
     Route: 048
  5. LANSOPRAZOLE [Concomitant]
     Dosage: 30 MG, UNK
     Route: 048
  6. TPN [Concomitant]
  7. CLINDAMYCIN [Concomitant]
  8. METHOTREXATE [METHOTREXATE] [Concomitant]
     Dosage: 25 MG, A WEEK
  9. IBUPROFEN [IBUPROFEN] [Concomitant]
     Indication: PAIN
     Dosage: 400 MG, UNK
     Route: 048
  10. VALPROIC ACID [VALPROIC ACID] [Concomitant]
     Dosage: 1000 MG, UNK
     Route: 042
  11. ACETAMINOPHEN [Concomitant]
     Indication: PAIN
     Dosage: 650 MG, UNK
     Route: 048
  12. PITTSBURGH PASTE [Concomitant]
     Dosage: 1 APPLICATION
     Route: 061
  13. PIPERACILLIN W/TAZOBACTAM [Concomitant]
     Dosage: 4000 MG, UNK
     Route: 042
  14. DEXAMETHASONE [DEXAMETHASONE] [Concomitant]
     Dosage: 10 MG, UNK
     Route: 042
  15. CETIRIZINE [Concomitant]
     Dosage: 10 MG, UNK
     Route: 048
  16. MORPHINE [Concomitant]
     Dosage: 1 MG, UNK
     Route: 042
  17. ONDANSETRON [Concomitant]
     Dosage: 4 MG, UNK
     Route: 042
  18. SODIUM CHLORIDE [Concomitant]
     Dosage: UNK
     Route: 042
  19. POTASSIUM CHLORIDE 22 MEQ; DEXTROSE 5% IN WATER [Concomitant]
     Route: 042
  20. POLYETHYLENE GLYCOL [Concomitant]
     Dosage: 255 G, UNK
     Route: 048
  21. DEXTROSE W/POTASSIUM CHLORIDE AND NACL [Concomitant]
     Route: 042
  22. LACTATED RINGER^S [Concomitant]

REACTIONS (2)
  - Subclavian vein thrombosis [Recovered/Resolved]
  - Thrombophlebitis superficial [Recovering/Resolving]
